FAERS Safety Report 7726095-5 (Version None)
Quarter: 2011Q3

REPORT INFORMATION
  Report Type: 
  Country: None (occurrence: None)
  Receive Date: 20110902
  Receipt Date: 20110824
  Transmission Date: 20111222
  Serious: Yes (Hospitalization)
  Sender: FDA-Public Use
  Company Number: US-AMGEN-KDL343100

PATIENT
  Age: 39 Year
  Sex: Female

DRUGS (2)
  1. ENBREL [Suspect]
     Indication: RHEUMATOID ARTHRITIS
     Dosage: 25 MG, Q2WK
     Route: 058
     Dates: start: 20040517, end: 20081031
  2. METHOTREXATE [Concomitant]

REACTIONS (6)
  - RHEUMATOID ARTHRITIS [None]
  - ARTHRALGIA [None]
  - DRUG INEFFECTIVE [None]
  - GESTATIONAL HYPERTENSION [None]
  - JOINT EFFUSION [None]
  - INDUCED LABOUR [None]
